FAERS Safety Report 9713660 (Version 1)
Quarter: 2013Q4

REPORT INFORMATION
  Report Type: Spontaneous
  Country: CH (occurrence: CH)
  Receive Date: 20131126
  Receipt Date: 20131126
  Transmission Date: 20140711
  Serious: Yes (Life-Threatening, Hospitalization, Other)
  Sender: FDA-Public Use
  Company Number: CH-ELI_LILLY_AND_COMPANY-CH201311006907

PATIENT
  Age: 84 Year
  Sex: Female
  Weight: 70 kg

DRUGS (8)
  1. EFIENT [Suspect]
     Indication: ACUTE MYOCARDIAL INFARCTION
     Dosage: 5 MG, QD
     Route: 048
     Dates: start: 20131004
  2. CLEXANE [Interacting]
     Indication: ACUTE MYOCARDIAL INFARCTION
     Dosage: 60 MG, BID
     Route: 065
     Dates: start: 20131004, end: 20131005
  3. ASPIRIN [Interacting]
     Indication: PRODUCT USED FOR UNKNOWN INDICATION
     Dosage: 100 MG, QD
     Route: 048
  4. LIQUEMIN [Interacting]
     Indication: CARDIOVASCULAR DISORDER
     Dosage: 5000 IU, UNK
     Route: 048
     Dates: start: 20131004, end: 20131004
  5. LIQUEMIN [Interacting]
     Dosage: UNK
     Dates: start: 20131006
  6. PANTOZOL                           /01263204/ [Concomitant]
     Dosage: UNK
     Route: 048
  7. SORTIS [Concomitant]
     Dosage: UNK
     Route: 048
  8. TRIATEC                            /00885601/ [Concomitant]
     Dosage: UNK
     Route: 065
     Dates: start: 20131004, end: 20131005

REACTIONS (5)
  - Shock haemorrhagic [Recovered/Resolved]
  - Haemorrhage [Unknown]
  - Arterial injury [Unknown]
  - Peripheral ischaemia [Unknown]
  - Haematoma [Unknown]
